FAERS Safety Report 14264331 (Version 1)
Quarter: 2017Q4

REPORT INFORMATION
  Report Type: Spontaneous
  Country: US (occurrence: US)
  Receive Date: 20171208
  Receipt Date: 20171208
  Transmission Date: 20180321
  Serious: No
  Sender: FDA-Public Use
  Company Number: US-JAZZ-2014-US-005503

PATIENT
  Age: 59 Year
  Sex: Female
  Weight: 62.59 kg

DRUGS (7)
  1. CRESTOR [Concomitant]
     Active Substance: ROSUVASTATIN CALCIUM
     Indication: BLOOD CHOLESTEROL INCREASED
     Route: 048
  2. XYREM [Suspect]
     Active Substance: SODIUM OXYBATE
     Dosage: 1.5 G, BID
     Route: 048
     Dates: start: 2014
  3. ATENOLOL. [Concomitant]
     Active Substance: ATENOLOL
     Indication: HYPERTENSION
     Route: 048
  4. XYREM [Suspect]
     Active Substance: SODIUM OXYBATE
     Indication: NARCOLEPSY
     Dosage: 0.75 G, BID
     Route: 048
     Dates: start: 20140426, end: 20140428
  5. PROVIGIL [Concomitant]
     Active Substance: MODAFINIL
     Indication: CATAPLEXY
  6. XYREM [Suspect]
     Active Substance: SODIUM OXYBATE
     Indication: CATAPLEXY
     Dosage: 1.5 G, BID
     Route: 048
     Dates: start: 20140429, end: 2014
  7. PROVIGIL [Concomitant]
     Active Substance: MODAFINIL
     Indication: NARCOLEPSY
     Route: 048

REACTIONS (7)
  - Restless legs syndrome [Unknown]
  - Arthropod bite [Recovered/Resolved]
  - Lymphadenopathy [Not Recovered/Not Resolved]
  - Muscle tightness [Unknown]
  - Swelling [Unknown]
  - Muscle spasms [Unknown]
  - Headache [Not Recovered/Not Resolved]

NARRATIVE: CASE EVENT DATE: 2014
